FAERS Safety Report 15974483 (Version 1)
Quarter: 2019Q1

REPORT INFORMATION
  Report Type: Spontaneous
  Country: US (occurrence: US)
  Receive Date: 20190218
  Receipt Date: 20190218
  Transmission Date: 20190418
  Serious: Yes (Hospitalization, Other)
  Sender: FDA-Public Use
  Company Number: US-SA-2019SA043917

PATIENT
  Age: 19 Year
  Sex: Female

DRUGS (6)
  1. CLONIDINE. [Concomitant]
     Active Substance: CLONIDINE
  2. DUPIXENT [Suspect]
     Active Substance: DUPILUMAB
     Indication: DERMATITIS ATOPIC
     Dosage: 300 MG, QOW
     Route: 058
     Dates: start: 20180410
  3. AMOXICILLIN. [Concomitant]
     Active Substance: AMOXICILLIN
  4. VRAYLAR [Concomitant]
     Active Substance: CARIPRAZINE
  5. NICOTINE. [Concomitant]
     Active Substance: NICOTINE
  6. TRILEPTAL [Concomitant]
     Active Substance: OXCARBAZEPINE

REACTIONS (4)
  - Suicide attempt [Not Recovered/Not Resolved]
  - Wound [Not Recovered/Not Resolved]
  - Infection [Not Recovered/Not Resolved]
  - Rash [Not Recovered/Not Resolved]

NARRATIVE: CASE EVENT DATE: 201901
